FAERS Safety Report 5309211-4 (Version None)
Quarter: 2007Q2

REPORT INFORMATION
  Report Type: 
  Country: None (occurrence: None)
  Receive Date: 20070423
  Receipt Date: 20070405
  Transmission Date: 20071010
  Serious: Yes (Other)
  Sender: FDA-Public Use
  Company Number: 155371USA

PATIENT
  Sex: Female

DRUGS (1)
  1. SALBUTAMOL SULFATE INHALATION, 0.09 MG(SALBUTAMOL) [Suspect]

REACTIONS (2)
  - HAEMATEMESIS [None]
  - PHARMACEUTICAL PRODUCT COMPLAINT [None]
